FAERS Safety Report 14016739 (Version 1)
Quarter: 2017Q3

REPORT INFORMATION
  Report Type: Report from Study
  Country: US (occurrence: US)
  Receive Date: 20170927
  Receipt Date: 20170927
  Transmission Date: 20171128
  Serious: Yes (Other)
  Sender: FDA-Public Use
  Company Number: US-JNJFOC-20170925624

PATIENT
  Sex: Female

DRUGS (1)
  1. IMBRUVICA [Suspect]
     Active Substance: IBRUTINIB
     Indication: MANTLE CELL LYMPHOMA
     Route: 048
     Dates: start: 20170105, end: 20170705

REACTIONS (7)
  - Renal disorder [Recovered/Resolved]
  - Bladder disorder [Recovered/Resolved]
  - Pneumonia [Recovered/Resolved]
  - Skin fissures [Recovered/Resolved]
  - Neuropathy peripheral [Recovered/Resolved]
  - Blood blister [Recovered/Resolved]
  - Pollakiuria [Recovered/Resolved]
